FAERS Safety Report 9101160 (Version 1)
Quarter: 2013Q1

REPORT INFORMATION
  Report Type: Spontaneous
  Country: GB (occurrence: GB)
  Receive Date: 20130215
  Receipt Date: 20130215
  Transmission Date: 20140127
  Serious: Yes (Death, Other)
  Sender: FDA-Public Use
  Company Number: GB-BAXTER-2012BAX026611

PATIENT
  Sex: Female
  Weight: 55.7 kg

DRUGS (15)
  1. PHYSIONEAL 35 GLUCOSE 1,36 % W/V 13,6 MG/ML CLEAR-FLEX PERITONEALDIALY [Suspect]
     Indication: PERITONEAL DIALYSIS
     Route: 033
  2. PHYSIONEAL 35 GLUCOSE 2,27 % W/V 22,7 MG/ML CLEAR-FLEX PERITONEALDIALY [Suspect]
     Indication: PERITONEAL DIALYSIS
     Route: 033
  3. EXTRANEAL [Suspect]
     Indication: PERITONEAL DIALYSIS
     Route: 033
  4. METOCLOPRAMIDE [Concomitant]
     Indication: PRODUCT USED FOR UNKNOWN INDICATION
     Route: 042
     Dates: start: 20121005
  5. DARBEPOETIN ALFA [Concomitant]
     Indication: PRODUCT USED FOR UNKNOWN INDICATION
     Route: 058
     Dates: start: 20120917
  6. CO-CODAMOL [Concomitant]
     Indication: PAIN
     Dosage: 2
     Route: 048
     Dates: start: 20110816
  7. PREDNISOLONE [Concomitant]
     Indication: PRODUCT USED FOR UNKNOWN INDICATION
     Route: 048
     Dates: start: 20120815
  8. RAMPRIL [Concomitant]
     Indication: PRODUCT USED FOR UNKNOWN INDICATION
     Route: 048
     Dates: start: 20110814
  9. BISOPROLOL [Concomitant]
     Indication: PRODUCT USED FOR UNKNOWN INDICATION
     Dosage: 2.5 MG (GP HAS IT AS 1.25 MG DAILY)
     Route: 048
     Dates: start: 20110813
  10. OMEPRAZOLE [Concomitant]
     Indication: PRODUCT USED FOR UNKNOWN INDICATION
     Route: 048
     Dates: start: 20110809
  11. CLONAZEPAM [Concomitant]
     Indication: RESTLESS LEGS SYNDROME
     Route: 048
     Dates: start: 20110103
  12. CITALOPRAM [Concomitant]
     Indication: PRODUCT USED FOR UNKNOWN INDICATION
     Route: 048
     Dates: start: 20110102
  13. MYCOPHENOLATE SODIUM [Concomitant]
     Indication: PRODUCT USED FOR UNKNOWN INDICATION
     Route: 048
     Dates: start: 20101027
  14. DIALYVIT [Concomitant]
     Indication: PRODUCT USED FOR UNKNOWN INDICATION
     Dosage: 1
     Route: 048
     Dates: start: 20100702
  15. HYDROXOCOBALAMIN [Concomitant]
     Indication: VITAMIN B12
     Route: 030

REACTIONS (4)
  - Lower respiratory tract infection [Fatal]
  - Sepsis [Fatal]
  - Epilepsy [Recovered/Resolved]
  - Pulmonary oedema [Unknown]
